FAERS Safety Report 19746215 (Version 1)
Quarter: 2021Q3

REPORT INFORMATION
  Report Type: Spontaneous
  Country: US (occurrence: US)
  Receive Date: 20210825
  Receipt Date: 20210825
  Transmission Date: 20211014
  Serious: No
  Sender: FDA-Public Use
  Company Number: US-ASTRAZENECA-2021A647020

PATIENT
  Sex: Male
  Weight: 126.6 kg

DRUGS (8)
  1. BENZTROPINE. [Concomitant]
     Active Substance: BENZTROPINE
  2. LOSARTAN. [Concomitant]
     Active Substance: LOSARTAN
  3. CITALOPRAM [Concomitant]
     Active Substance: CITALOPRAM HYDROBROMIDE
  4. DEPAKOTE [Concomitant]
     Active Substance: DIVALPROEX SODIUM
  5. GABAPENTIN. [Concomitant]
     Active Substance: GABAPENTIN
  6. SEROQUEL [Concomitant]
     Active Substance: QUETIAPINE FUMARATE
  7. KOSELUGO [Suspect]
     Active Substance: SELUMETINIB
     Indication: CRANIAL NERVE NEOPLASM BENIGN
     Route: 048
  8. BUSPIRONE [Concomitant]
     Active Substance: BUSPIRONE HYDROCHLORIDE

REACTIONS (2)
  - Skin reaction [Unknown]
  - Blister [Unknown]
